FAERS Safety Report 5218280-1 (Version None)
Quarter: 2007Q1

REPORT INFORMATION
  Report Type: 
  Country: None (occurrence: None)
  Receive Date: 20070124
  Receipt Date: 20070112
  Transmission Date: 20070707
  Serious: Yes (Death, Hospitalization, Other)
  Sender: FDA-Public Use
  Company Number: US-PFIZER INC-2006143217

PATIENT
  Sex: Male
  Weight: 90.7 kg

DRUGS (7)
  1. SUTENT [Suspect]
     Indication: RENAL CELL CARCINOMA STAGE UNSPECIFIED
     Route: 048
     Dates: start: 20060712, end: 20060922
  2. LEXAPRO [Concomitant]
  3. DECADRON [Concomitant]
  4. PREVACID [Concomitant]
  5. IBUPROFEN [Concomitant]
  6. DIPHENHYDRAMINE HCL [Concomitant]
  7. ALL OTHER THERAPEUTIC PRODUCTS [Concomitant]

REACTIONS (9)
  - ABDOMINAL PAIN [None]
  - CONSTIPATION [None]
  - DEATH [None]
  - METASTASES TO CENTRAL NERVOUS SYSTEM [None]
  - PANCREATIC NECROSIS [None]
  - PANCREATITIS [None]
  - PNEUMOPERITONEUM [None]
  - RESPIRATORY FAILURE [None]
  - SEPSIS [None]
